FAERS Safety Report 5314554-4 (Version None)
Quarter: 2007Q2

REPORT INFORMATION
  Report Type: 
  Country: None (occurrence: None)
  Receive Date: 20070425
  Receipt Date: 20070411
  Transmission Date: 20071010
  Serious: Yes (Hospitalization)
  Sender: FDA-Public Use
  Company Number: 2007BI005984

PATIENT
  Age: 72 Year
  Sex: Female

DRUGS (8)
  1. AVONEX [Suspect]
     Indication: MULTIPLE SCLEROSIS
     Dosage: 30 UG; QW; IM
     Route: 030
     Dates: start: 19980204
  2. AVONEX [Suspect]
     Indication: MULTIPLE SCLEROSIS
     Dosage: 30 UG; QW; IM
     Route: 030
  3. CALCIUM WITH VITAMIN D [Concomitant]
  4. FISH OIL [Concomitant]
  5. CRANBERRY PILLS [Concomitant]
  6. ASCORBIC ACID [Concomitant]
  7. TYLENOL [Concomitant]
  8. ACTONEL [Concomitant]

REACTIONS (7)
  - DYSPHAGIA [None]
  - DYSPNOEA [None]
  - FALL [None]
  - KYPHOSIS [None]
  - LOWER LIMB FRACTURE [None]
  - MUSCULAR WEAKNESS [None]
  - OSTEOPOROSIS [None]
